FAERS Safety Report 4543945-4 (Version None)
Quarter: 2005Q1

REPORT INFORMATION
  Report Type: 
  Country: None (occurrence: None)
  Receive Date: 20050103
  Receipt Date: 20040209
  Transmission Date: 20050727
  Serious: Yes (Hospitalization)
  Sender: FDA-Public Use
  Company Number: GXKR2004GB00494

PATIENT
  Age: 92 Year
  Sex: Female

DRUGS (5)
  1. FUROSEMIDE (NGX) (FUROSEMIDE) [Suspect]
     Dosage: 40 MG, QD, ORAL
     Route: 048
     Dates: end: 20040122
  2. DIGOXIN [Concomitant]
  3. DRIED FERROUS SULPHATE (IRON) [Concomitant]
  4. CALCICHEW (CALCIUM CARBONATE) [Concomitant]
  5. ASPIRIN [Concomitant]

REACTIONS (2)
  - FALL [None]
  - HYPONATRAEMIA [None]
